FAERS Safety Report 7329157-X (Version None)
Quarter: 2011Q1

REPORT INFORMATION
  Report Type: 
  Country: None (occurrence: None)
  Receive Date: 20110303
  Receipt Date: 20110302
  Transmission Date: 20110831
  Serious: Yes (Hospitalization)
  Sender: FDA-Public Use
  Company Number: A0759689A

PATIENT
  Age: 49 Year
  Sex: Female
  Weight: 73.9 kg

DRUGS (3)
  1. PACLITAXEL [Suspect]
     Dosage: 80MGM2 CYCLIC
     Route: 042
     Dates: start: 20081119
  2. CARBOPLATIN [Suspect]
     Dosage: 246MG CYCLIC
     Route: 042
     Dates: start: 20081119
  3. LAPATINIB [Suspect]
     Dosage: 1000MG PER DAY
     Route: 048
     Dates: start: 20081119, end: 20081129

REACTIONS (2)
  - DEEP VEIN THROMBOSIS [None]
  - STAPHYLOCOCCAL SEPSIS [None]
